FAERS Safety Report 15411234 (Version 2)
Quarter: 2019Q1

REPORT INFORMATION
  Report Type: Spontaneous
  Country: US (occurrence: US)
  Receive Date: 20180921
  Receipt Date: 20190305
  Transmission Date: 20190417
  Serious: No
  Sender: FDA-Public Use
  Company Number: US-PFIZER INC-2018379494

PATIENT
  Age: 30 Year
  Sex: Female

DRUGS (2)
  1. SOMAVERT [Suspect]
     Active Substance: PEGVISOMANT
     Dosage: 30 MG, DAILY
  2. SOMAVERT [Suspect]
     Active Substance: PEGVISOMANT
     Dosage: 20 MG, DAILY
     Dates: start: 20180512

REACTIONS (5)
  - Injection site pain [Unknown]
  - Hyperhidrosis [Recovering/Resolving]
  - Insulin-like growth factor increased [Unknown]
  - Headache [Unknown]
  - Adenoma benign [Unknown]

NARRATIVE: CASE EVENT DATE: 20181227
